FAERS Safety Report 7828390-8 (Version None)
Quarter: 2011Q4

REPORT INFORMATION
  Report Type: 
  Country: None (occurrence: None)
  Receive Date: 20111020
  Receipt Date: 20111018
  Transmission Date: 20120403
  Serious: No
  Sender: FDA-Public Use
  Company Number: US-PFIZER INC-2011250535

PATIENT
  Sex: Female
  Weight: 9.07 kg

DRUGS (1)
  1. IBUPROFEN (ADVIL) [Suspect]
     Dosage: UNK
     Route: 048
     Dates: start: 20111018

REACTIONS (2)
  - ACCIDENTAL DRUG INTAKE BY CHILD [None]
  - VOMITING [None]
